FAERS Safety Report 17889920 (Version 2)
Quarter: 2020Q2

REPORT INFORMATION
  Report Type: Report from Study
  Country: US (occurrence: US)
  Receive Date: 20200612
  Receipt Date: 20200618
  Transmission Date: 20200714
  Serious: No
  Sender: FDA-Public Use
  Company Number: NVSC2020US164102

PATIENT
  Age: 93 Year
  Sex: Male

DRUGS (2)
  1. ENTRESTO [Suspect]
     Active Substance: SACUBITRIL\VALSARTAN
     Dosage: 24.26 MG, BID
     Route: 048
     Dates: start: 20200530
  2. ENTRESTO [Suspect]
     Active Substance: SACUBITRIL\VALSARTAN
     Indication: CARDIAC FAILURE
     Dosage: UNK UNK, QD
     Route: 048

REACTIONS (6)
  - Hypotension [Recovering/Resolving]
  - Product prescribing error [Unknown]
  - Anxiety [Recovering/Resolving]
  - Fatigue [Recovering/Resolving]
  - Wrong technique in product usage process [Unknown]
  - Malaise [Recovering/Resolving]

NARRATIVE: CASE EVENT DATE: 20200530
